FAERS Safety Report 7456189-3 (Version None)
Quarter: 2011Q1

REPORT INFORMATION
  Report Type: 
  Country: None (occurrence: None)
  Receive Date: 20110302
  Receipt Date: 20110103
  Transmission Date: 20110831
  Serious: No
  Sender: FDA-Public Use
  Company Number: 024896

PATIENT

DRUGS (1)
  1. CIMZIA [Suspect]
     Dosage: 400 MG 1X/4 WEEKS SUBCUTANEOUS
     Route: 058

REACTIONS (1)
  - SUBCUTANEOUS ABSCESS [None]
